FAERS Safety Report 4913618-4 (Version None)
Quarter: 2006Q1

REPORT INFORMATION
  Report Type: 
  Country: None (occurrence: None)
  Receive Date: 20060216
  Receipt Date: 20060207
  Transmission Date: 20060701
  Serious: Yes (Death, Hospitalization)
  Sender: FDA-Public Use
  Company Number: US-JNJFOC-20040707765

PATIENT
  Sex: Female
  Weight: 78.02 kg

DRUGS (24)
  1. DURAGESIC-100 [Suspect]
     Route: 062
  2. DURAGESIC-100 [Suspect]
     Route: 062
  3. DURAGESIC-100 [Suspect]
     Route: 062
  4. DURAGESIC-100 [Suspect]
     Route: 062
  5. DURAGESIC-100 [Suspect]
     Route: 062
  6. VICODIN [Suspect]
     Route: 048
  7. VICODIN [Suspect]
     Indication: PAIN
     Route: 048
  8. TEMAZEPAM [Concomitant]
     Indication: SLEEP DISORDER
     Dosage: AS NEEDED
     Route: 048
  9. ENDOCET [Concomitant]
     Route: 048
  10. ENDOCET [Concomitant]
     Dosage: 5-325MG, EVERY 4-6 HOURS, AS NEEDED
     Route: 048
  11. OXYCONTIN [Concomitant]
  12. CELEXA [Concomitant]
     Route: 048
  13. NORVASC [Concomitant]
     Route: 048
  14. NORVASC [Concomitant]
     Route: 048
  15. PREVACID [Concomitant]
     Route: 048
  16. VIOXX [Concomitant]
     Route: 048
  17. SEROQUEL [Concomitant]
     Dosage: HOUR OF SLEEP
     Route: 048
  18. SINGULAIR [Concomitant]
     Route: 048
  19. SINGULAIR [Concomitant]
     Route: 048
  20. MORPHINE SULFATE [Concomitant]
     Dosage: 2-4 MG Q 2 HOURS VIA INTRAVENOUS (IV) PUMP  1MG IV STAT FOR PAIN
  21. MORPHINE SULFATE [Concomitant]
     Indication: PAIN
     Dosage: 2-4MG Q  2-4 HOURS, AS NEEDED      27DEC02: 1MG IV
  22. PROTONIX [Concomitant]
  23. ULTRACET [Concomitant]
  24. DEPO-MEDROL [Concomitant]
     Indication: PELVIC PAIN
     Route: 050

REACTIONS (38)
  - ACUTE RESPIRATORY DISTRESS SYNDROME [None]
  - AREFLEXIA [None]
  - ATRIAL FIBRILLATION [None]
  - BLOOD CREATININE INCREASED [None]
  - BLOOD GLUCOSE INCREASED [None]
  - CARDIAC ARREST [None]
  - CYANOSIS [None]
  - DEVICE FAILURE [None]
  - DRUG TOXICITY [None]
  - ELECTROCARDIOGRAM ST SEGMENT DEPRESSION [None]
  - ELECTROCARDIOGRAM T WAVE ABNORMAL [None]
  - FALL [None]
  - FLUID OVERLOAD [None]
  - FOAMING AT MOUTH [None]
  - HAEMATOCRIT DECREASED [None]
  - HAEMOGLOBIN DECREASED [None]
  - HALLUCINATIONS, MIXED [None]
  - HYPOKINESIA [None]
  - IMMOBILE [None]
  - INSOMNIA [None]
  - INTERVERTEBRAL DISC PROTRUSION [None]
  - LOSS OF CONSCIOUSNESS [None]
  - LUNG INFILTRATION [None]
  - MAJOR DEPRESSION [None]
  - MYOCARDIAL INFARCTION [None]
  - OVERDOSE [None]
  - PARANOIA [None]
  - PLEURAL EFFUSION [None]
  - PNEUMONIA [None]
  - PNEUMONIA ASPIRATION [None]
  - PNEUMOTHORAX [None]
  - PULMONARY HAEMORRHAGE [None]
  - PULMONARY OEDEMA [None]
  - RESPIRATORY DEPRESSION [None]
  - RESPIRATORY FAILURE [None]
  - SCIATICA [None]
  - SOMNOLENCE [None]
  - WHITE BLOOD CELL COUNT INCREASED [None]
